FAERS Safety Report 8934792 (Version 3)
Quarter: 2012Q4

REPORT INFORMATION
  Report Type: Report from Study
  Country: IT (occurrence: IT)
  Receive Date: 20121129
  Receipt Date: 20121226
  Transmission Date: 20130627
  Serious: Yes (Other)
  Sender: FDA-Public Use
  Company Number: IT-ASTELLAS-2012US011619

PATIENT
  Sex: Male
  Weight: 60 kg

DRUGS (5)
  1. ERLOTINIB TABLET [Suspect]
     Indication: NON-SMALL CELL LUNG CANCER
     Dosage: 150 mg, UID/QD
     Route: 048
     Dates: start: 20120201, end: 20120201
  2. DOCETAXEL [Suspect]
     Indication: NON-SMALL CELL LUNG CANCER
     Dosage: 122.25 mg, day 1 and every 21 days
     Route: 042
     Dates: start: 20120131, end: 20120131
  3. DOCETAXEL [Suspect]
     Dosage: 122.25 mg, day 1 and every 21 days
     Route: 042
     Dates: start: 20120131
  4. CARDIOASPIRINA [Concomitant]
     Indication: PRODUCT USED FOR UNKNOWN INDICATION
     Dosage: UNK
     Route: 065
     Dates: start: 2000
  5. RAMIPRIL [Concomitant]
     Indication: PRODUCT USED FOR UNKNOWN INDICATION
     Dosage: UNK
     Route: 065
     Dates: start: 2000

REACTIONS (1)
  - Anaphylactic reaction [Recovered/Resolved]
